FAERS Safety Report 5581989-4 (Version None)
Quarter: 2008Q1

REPORT INFORMATION
  Report Type: 
  Country: None (occurrence: None)
  Receive Date: 20080104
  Receipt Date: 20071231
  Transmission Date: 20080703
  Serious: No
  Sender: FDA-Public Use
  Company Number: GB-WYE-G00704607

PATIENT
  Sex: Female
  Weight: 56 kg

DRUGS (9)
  1. RAPAMUNE [Suspect]
     Indication: RENAL TRANSPLANT
     Dosage: 4MG, FREQUENCY UNKNOWN
     Route: 048
  2. PREDNISOLONE [Concomitant]
     Dosage: 7.5MG, FREQUENCY UNKNOWN
  3. ATORVASTATIN CALCIUM [Concomitant]
     Dosage: 80MG, FREQUENCY UNKNOWN
  4. LANSOPRAZOLE [Concomitant]
     Dosage: 15MG, FREQUENCY UNKNOWN
  5. PERINDOPRIL [Concomitant]
     Dosage: 4MG, FREQUENCY UNKNOWN
  6. ALFACALCIDOL [Concomitant]
     Dosage: 2.5MG, FREQUENCY UNKNOWN
  7. CALCICHEW [Concomitant]
     Dosage: 1 DOSE, FREQUENCY UNKNOWN
  8. FEMSEVEN [Concomitant]
     Dosage: UNKNOWN
  9. ACETYLSALICYLIC ACID SRT [Concomitant]
     Dosage: 75MG, FREQUENCY UNKNOWN

REACTIONS (2)
  - HEPATIC LESION [None]
  - SPLENIC LESION [None]
